FAERS Safety Report 19605642 (Version 2)
Quarter: 2021Q3

REPORT INFORMATION
  Report Type: Other
  Country: US (occurrence: US)
  Receive Date: 20210723
  Receipt Date: 20210802
  Transmission Date: 20211014
  Serious: Yes (Death)
  Sender: FDA-Public Use
  Company Number: US-ROCHE-2876714

PATIENT
  Sex: Male

DRUGS (1)
  1. AVASTIN [Suspect]
     Active Substance: BEVACIZUMAB
     Indication: BRAIN NEOPLASM MALIGNANT
     Dosage: INFUSE 10MG/KG (800MG) INTRAVENOUSLY EVERY 2 WEEK
     Route: 042

REACTIONS (2)
  - Death [Fatal]
  - Off label use [Unknown]
